FAERS Safety Report 25430853 (Version 2)
Quarter: 2025Q2

REPORT INFORMATION
  Report Type: Spontaneous
  Country: BR (occurrence: BR)
  Receive Date: 20250612
  Receipt Date: 20250619
  Transmission Date: 20250716
  Serious: Yes (Other)
  Sender: SANDOZ
  Company Number: BR-002147023-NVSC2025BR091468

PATIENT
  Sex: Female
  Weight: 80 kg

DRUGS (3)
  1. FLUOXETINE [Suspect]
     Active Substance: FLUOXETINE HYDROCHLORIDE
     Indication: Anxiety
     Dosage: 1 DF, QD, 1 DOSAGE FORM, QD (ONE TABLET AFTER LUNCH  ONCE DAILY)
     Route: 065
  2. ALPRAZOLAM [Concomitant]
     Active Substance: ALPRAZOLAM
     Indication: Insomnia
     Dosage: 1 DF, QD, 1 DOSAGE FORM, QD (ONE TABLET AT NIGH)
     Route: 065
  3. Atenolol+clortalidona [Concomitant]
     Indication: Blood pressure abnormal
     Dosage: 1 DF, QD, 1 DOSAGE FORM, QD (ONE TABLET IN THE  MORNING ONCE DAILY)
     Route: 048

REACTIONS (2)
  - Breast cancer [Unknown]
  - Memory impairment [Unknown]
